FAERS Safety Report 4860510-X (Version None)
Quarter: 2005Q4

REPORT INFORMATION
  Report Type: 
  Country: None (occurrence: None)
  Receive Date: 20051219
  Receipt Date: 20051129
  Transmission Date: 20060501
  Serious: No
  Sender: FDA-Public Use
  Company Number: IE-NOVOPROD-248505

PATIENT
  Age: 67 Year
  Sex: Female
  Weight: 99 kg

DRUGS (7)
  1. LEVEMIR [Suspect]
     Indication: DIABETES MELLITUS
     Dosage: 24 IU, QD
     Dates: start: 20051005
  2. WARFARIN [Concomitant]
  3. LIPITOR [Concomitant]
     Dosage: 10 MG, UNK
  4. ZESTRIL [Concomitant]
     Dosage: 10 MG, UNK
  5. METFORMIN [Concomitant]
     Dosage: 2 G, BID
     Dates: start: 19990428
  6. GLICLAZIDE [Concomitant]
     Dosage: 30 MG, QD
  7. DIAMICRON [Concomitant]
     Dosage: 30 MG, UNK
     Route: 048
     Dates: start: 20051031

REACTIONS (1)
  - INTERNATIONAL NORMALISED RATIO INCREASED [None]
